FAERS Safety Report 6979401-3 (Version None)
Quarter: 2010Q3

REPORT INFORMATION
  Report Type: 
  Country: None (occurrence: None)
  Receive Date: 20100910
  Receipt Date: 20100910
  Transmission Date: 20110219
  Serious: Yes (Life-Threatening, Other)
  Sender: FDA-Public Use
  Company Number: None

PATIENT
  Sex: Male
  Weight: 86.1834 kg

DRUGS (5)
  1. TORADOL [Suspect]
     Dates: start: 20100719
  2. TORADOL [Suspect]
     Dates: start: 20100721
  3. PROZAC [Concomitant]
  4. DIOVAN [Concomitant]
  5. KLONOPIN [Concomitant]

REACTIONS (5)
  - ARTHRALGIA [None]
  - ASTHENIA [None]
  - DEPRESSION [None]
  - HYPERTENSION [None]
  - SUICIDAL IDEATION [None]
